FAERS Safety Report 5325594-3 (Version None)
Quarter: 2007Q2

REPORT INFORMATION
  Report Type: 
  Country: None (occurrence: None)
  Receive Date: 20070515
  Receipt Date: 20070503
  Transmission Date: 20071010
  Serious: Yes (Other)
  Sender: FDA-Public Use
  Company Number: US-ELI_LILLY_AND_COMPANY-US200703003778

PATIENT
  Age: 8 Year
  Sex: Male
  Weight: 29.478 kg

DRUGS (4)
  1. STRATTERA [Suspect]
     Indication: ATTENTION DEFICIT/HYPERACTIVITY DISORDER
     Dosage: 10 MG, UNK
     Dates: start: 20060301, end: 20060101
  2. STRATTERA [Suspect]
     Dosage: 18 MG, UNK
     Dates: start: 20060101, end: 20070101
  3. STRATTERA [Suspect]
     Dosage: UNK MG, UNK
     Dates: start: 20070101, end: 20070301
  4. STRATTERA [Suspect]
     Dosage: 18 MG, UNK
     Dates: start: 20070301, end: 20070301

REACTIONS (3)
  - CONVULSION [None]
  - EPILEPSY [None]
  - TREMOR [None]
